FAERS Safety Report 8420861-9 (Version None)
Quarter: 2012Q2

REPORT INFORMATION
  Report Type: 
  Country: None (occurrence: None)
  Receive Date: 20120531
  Receipt Date: 20120529
  Transmission Date: 20120825
  Serious: Yes (Other)
  Sender: FDA-Public Use
  Company Number: ADR-2012-00391

PATIENT
  Age: 54 Year
  Sex: Male

DRUGS (2)
  1. LIORESAL [Suspect]
     Indication: MULTIPLE SCLEROSIS
  2. LIORESAL [Suspect]
     Indication: MUSCLE SPASTICITY

REACTIONS (7)
  - DRUG WITHDRAWAL SYNDROME [None]
  - TACHYCARDIA [None]
  - TREMOR [None]
  - DEVICE LEAKAGE [None]
  - WOUND DEHISCENCE [None]
  - WOUND INFECTION [None]
  - DEVICE RELATED INFECTION [None]
